FAERS Safety Report 22245898 (Version 1)
Quarter: 2023Q2

REPORT INFORMATION
  Report Type: Spontaneous
  Country: FR (occurrence: FR)
  Receive Date: 20230424
  Receipt Date: 20230424
  Transmission Date: 20230721
  Serious: Yes (Life-Threatening, Hospitalization)
  Sender: FDA-Public Use
  Company Number: None

PATIENT
  Age: 35 Year
  Sex: Female
  Weight: 58 kg

DRUGS (11)
  1. LIDOCAINE HYDROCHLORIDE [Suspect]
     Active Substance: LIDOCAINE HYDROCHLORIDE
     Indication: General anaesthesia
     Dosage: AT 08:30
     Route: 042
     Dates: start: 20230327, end: 20230327
  2. PROPOFOL [Suspect]
     Active Substance: PROPOFOL
     Indication: General anaesthesia
     Dosage: AT 08:30?250 MG
     Route: 042
     Dates: start: 20230327, end: 20230327
  3. ATROPINE [Suspect]
     Active Substance: ATROPINE
     Indication: General anaesthesia
     Dosage: AT 10.50 A.M.?0.5 MG
     Route: 042
     Dates: start: 20230327, end: 20230327
  4. SUFENTANIL [Suspect]
     Active Substance: SUFENTANIL
     Indication: General anaesthesia
     Dosage: 3 INJECTIONS FROM 8:30 A.M. TO 10:00 A.M.
     Route: 042
     Dates: start: 20230327, end: 20230327
  5. NIMBEX [Suspect]
     Active Substance: CISATRACURIUM BESYLATE
     Indication: General anaesthesia
     Dosage: 3 INJECTIONS FROM 8:30 A.M. TO 10:30 A.M.
     Route: 042
     Dates: start: 20230327, end: 20230327
  6. NEOSTIGMINE METHYLSULFATE [Suspect]
     Active Substance: NEOSTIGMINE METHYLSULFATE
     Indication: General anaesthesia
     Dosage: AT 10.50 A.M.
     Route: 042
     Dates: start: 20230327, end: 20230327
  7. ACUPAN [Suspect]
     Active Substance: NEFOPAM HYDROCHLORIDE
     Indication: General anaesthesia
     Dosage: AT 09:50
     Route: 042
     Dates: start: 20230327, end: 20230327
  8. CEFAZOLIN SODIUM [Suspect]
     Active Substance: CEFAZOLIN SODIUM
     Indication: Antibiotic prophylaxis
     Dosage: AT 8:40 A.M.
     Route: 042
     Dates: start: 20230327, end: 20230327
  9. PERFALGAN [Suspect]
     Active Substance: ACETAMINOPHEN
     Indication: General anaesthesia
     Dosage: AT 09:50
     Route: 042
     Dates: start: 20230327, end: 20230327
  10. KETAMINE [Suspect]
     Active Substance: KETAMINE
     Indication: General anaesthesia
     Dosage: AT 08:30
     Route: 042
     Dates: start: 20230327, end: 20230327
  11. KETOPROFEN [Suspect]
     Active Substance: KETOPROFEN
     Indication: General anaesthesia
     Dosage: AT 09:50?100 MG
     Route: 042
     Dates: start: 20230327, end: 20230327

REACTIONS (1)
  - Anaphylactic reaction [Recovered/Resolved]

NARRATIVE: CASE EVENT DATE: 20230327
